FAERS Safety Report 9607291 (Version 1)
Quarter: 2013Q4

REPORT INFORMATION
  Report Type: Spontaneous
  Country: US (occurrence: US)
  Receive Date: 20131009
  Receipt Date: 20131009
  Transmission Date: 20140711
  Serious: Yes (Other)
  Sender: FDA-Public Use
  Company Number: US-AMGEN-USASP2013069825

PATIENT
  Sex: Female

DRUGS (1)
  1. PROLIA [Suspect]
     Indication: PRODUCT USED FOR UNKNOWN INDICATION
     Route: 065

REACTIONS (7)
  - Lung infection [Unknown]
  - Immune system disorder [Unknown]
  - Sinusitis [Unknown]
  - Tooth abscess [Unknown]
  - Escherichia infection [Unknown]
  - Fatigue [Unknown]
  - Herpes zoster [Unknown]
